FAERS Safety Report 19020366 (Version 1)
Quarter: 2021Q1

REPORT INFORMATION
  Report Type: Spontaneous
  Country: US (occurrence: US)
  Receive Date: 20210317
  Receipt Date: 20210317
  Transmission Date: 20210420
  Serious: No
  Sender: FDA-Public Use
  Company Number: US-AMGEN-USASP2021039059

PATIENT
  Age: 61 Year
  Sex: Male

DRUGS (2)
  1. CINACALCET HCL [Suspect]
     Active Substance: CINACALCET HYDROCHLORIDE
     Indication: CALCIPHYLAXIS
     Dosage: 30 MILLIGRAM, QD
     Route: 065
  2. SODIUM THIOSULFATE [Concomitant]
     Active Substance: SODIUM THIOSULFATE
     Indication: CALCIPHYLAXIS
     Route: 042

REACTIONS (3)
  - Anxiety [Unknown]
  - Off label use [Unknown]
  - Insomnia [Unknown]
